FAERS Safety Report 4828827-2 (Version None)
Quarter: 2005Q4

REPORT INFORMATION
  Report Type: 
  Country: None (occurrence: None)
  Receive Date: 20051014
  Receipt Date: 20050621
  Transmission Date: 20060501
  Serious: No
  Sender: FDA-Public Use
  Company Number: 2005SP001245

PATIENT
  Age: 60 Year
  Sex: Male
  Weight: 74.8435 kg

DRUGS (5)
  1. LUNESTA [Suspect]
     Indication: INSOMNIA
     Dosage: 3 MG; HS; ORAL
     Route: 048
     Dates: start: 20050101
  2. CELEBREX [Concomitant]
  3. LIPITOR [Concomitant]
  4. DIURETICS [Concomitant]
  5. POTASSIUM [Concomitant]

REACTIONS (1)
  - INSOMNIA [None]
